FAERS Safety Report 8059209-0 (Version None)
Quarter: 2012Q1

REPORT INFORMATION
  Report Type: 
  Country: None (occurrence: None)
  Receive Date: 20120120
  Receipt Date: 20120113
  Transmission Date: 20120608
  Serious: Yes (Death)
  Sender: FDA-Public Use
  Company Number: JP-ABBOTT-11P-087-0885573-00

PATIENT
  Age: 32 Year
  Sex: Male

DRUGS (3)
  1. HUMIRA [Suspect]
     Indication: CROHN'S DISEASE
     Route: 058
     Dates: start: 20110901, end: 20111110
  2. TEPRENONE [Concomitant]
     Indication: GASTRITIS
     Route: 048
  3. SULFASALAZINE [Concomitant]
     Indication: ENTEROCOLITIS
     Dosage: 3000 MG DAILY
     Route: 048

REACTIONS (1)
  - COMPLETED SUICIDE [None]
